FAERS Safety Report 5448618-1 (Version None)
Quarter: 2007Q3

REPORT INFORMATION
  Report Type: 
  Country: None (occurrence: None)
  Receive Date: 20070906
  Receipt Date: 20070906
  Transmission Date: 20080115
  Serious: Yes (Death, Hospitalization)
  Sender: FDA-Public Use
  Company Number: None

PATIENT
  Age: 82 Year
  Sex: Male

DRUGS (1)
  1. NATRECOR [Suspect]
     Indication: CARDIAC FAILURE ACUTE
     Dosage: 0.01 MCG/KG/MIN CONTINUOUS IV
     Route: 042
     Dates: start: 20070330, end: 20070403

REACTIONS (3)
  - BLOOD CREATININE INCREASED [None]
  - BLOOD UREA INCREASED [None]
  - POST PROCEDURAL COMPLICATION [None]
